FAERS Safety Report 21533644 (Version 1)
Quarter: 2022Q4

REPORT INFORMATION
  Report Type: Spontaneous
  Country: US (occurrence: None)
  Receive Date: 20221031
  Receipt Date: 20221031
  Transmission Date: 20230113
  Serious: Yes (Hospitalization)
  Sender: FDA-Public Use
  Company Number: None

PATIENT
  Sex: Male

DRUGS (4)
  1. CREON [Suspect]
     Active Substance: PANCRELIPASE AMYLASE\PANCRELIPASE LIPASE\PANCRELIPASE PROTEASE
     Indication: Asthma
     Dosage: OTHER FREQUENCY : SEE EVENT;?AKE 7 TO 9 CAPSULES WITH MEALS AND 3 TO 4 CAPSULES WITH TAKE 7 TO 9 CAP
     Route: 048
     Dates: start: 202102
  2. CREON [Suspect]
     Active Substance: PANCRELIPASE AMYLASE\PANCRELIPASE LIPASE\PANCRELIPASE PROTEASE
     Indication: Cystic fibrosis
  3. PULMOZYME [Suspect]
     Active Substance: DORNASE ALFA
     Indication: Asthma
     Dosage: FREQUENCY : TWICE A DAY;?OTHER ROUTE : VIA NEBULIZER;?
     Route: 050
     Dates: start: 202204
  4. PULMOZYME [Suspect]
     Active Substance: DORNASE ALFA
     Indication: Cystic fibrosis

REACTIONS (1)
  - Hospitalisation [None]
